FAERS Safety Report 5623078-6 (Version None)
Quarter: 2008Q1

REPORT INFORMATION
  Report Type: 
  Country: None (occurrence: None)
  Receive Date: 20080212
  Receipt Date: 20080207
  Transmission Date: 20080703
  Serious: Yes (Other)
  Sender: FDA-Public Use
  Company Number: PHNU2008DE00873

PATIENT

DRUGS (1)
  1. RASILEZ [Suspect]
     Dosage: 150 MG, QD

REACTIONS (1)
  - BLOOD POTASSIUM DECREASED [None]
